FAERS Safety Report 8247019-0 (Version None)
Quarter: 2012Q1

REPORT INFORMATION
  Report Type: 
  Country: None (occurrence: None)
  Receive Date: 20120330
  Receipt Date: 20120330
  Transmission Date: 20120608
  Serious: Yes (Hospitalization)
  Sender: FDA-Public Use
  Company Number: None

PATIENT
  Age: 63 Year
  Sex: Female
  Weight: 58.967 kg

DRUGS (22)
  1. GENTAMICIN [Concomitant]
  2. LASIX [Concomitant]
  3. RECLAST [Suspect]
     Indication: OSTEOPOROSIS
     Dosage: 5MG
     Route: 042
     Dates: start: 20120322, end: 20120322
  4. REGULAR INSULIN [Concomitant]
  5. CEFTAZIDIME [Concomitant]
  6. LOPRESSOR [Concomitant]
  7. ATROVENT [Concomitant]
  8. CELEXA [Concomitant]
  9. ASPIRIN [Concomitant]
  10. OXYCODONE HCL [Concomitant]
  11. ATIVAN [Concomitant]
  12. COLACE [Concomitant]
  13. COMBIVENT [Concomitant]
  14. VITAMIN D [Concomitant]
  15. SEROQUEL [Concomitant]
  16. SENNA TAB. [Concomitant]
  17. NEXIUM [Concomitant]
  18. PREDNISONE [Concomitant]
  19. HEPARIN [Concomitant]
  20. GABAPENTIN [Concomitant]
  21. CALCIUM CARBONATE [Concomitant]
  22. ALBUTEROL [Concomitant]

REACTIONS (4)
  - BACK PAIN [None]
  - BLOOD PRESSURE INCREASED [None]
  - MENTAL STATUS CHANGES [None]
  - TACHYCARDIA [None]
